FAERS Safety Report 4847586-0 (Version None)
Quarter: 2005Q4

REPORT INFORMATION
  Report Type: 
  Country: None (occurrence: None)
  Receive Date: 20051205
  Receipt Date: 20051118
  Transmission Date: 20060501
  Serious: Yes (Hospitalization)
  Sender: FDA-Public Use
  Company Number: 430032N05FRA

PATIENT
  Age: 41 Year
  Sex: Female

DRUGS (3)
  1. NOVANTRONE [Suspect]
     Indication: MULTIPLE SCLEROSIS
     Dosage: 20 MG, 1 IN 1 CYCLE, INTRAVENOUS
     Route: 042
     Dates: start: 20050527, end: 20050527
  2. NOVANTRONE [Suspect]
     Indication: MULTIPLE SCLEROSIS
     Dosage: 20 MG, 1 IN 1 CYCLE, INTRAVENOUS
     Route: 042
     Dates: start: 20050701, end: 20050701
  3. NOVANTRONE [Suspect]
     Indication: MULTIPLE SCLEROSIS
     Dosage: 20 MG, 1 IN 1 CYCLE, INTRAVENOUS
     Route: 042
     Dates: start: 20050810, end: 20050810

REACTIONS (1)
  - PERICARDIAL EFFUSION [None]
